FAERS Safety Report 5632745-X (Version None)
Quarter: 2008Q1

REPORT INFORMATION
  Report Type: 
  Country: None (occurrence: None)
  Receive Date: 20080221
  Receipt Date: 20080215
  Transmission Date: 20080703
  Serious: Yes (Hospitalization)
  Sender: FDA-Public Use
  Company Number: US-JNJFOC-20080203691

PATIENT
  Sex: Female
  Weight: 68.04 kg

DRUGS (5)
  1. FENTANYL TRANSDERMAL SYSTEM [Suspect]
     Route: 062
  2. FENTANYL TRANSDERMAL SYSTEM [Suspect]
     Route: 062
  3. FENTANYL TRANSDERMAL SYSTEM [Suspect]
     Indication: DRUG USE FOR UNKNOWN INDICATION
     Route: 062
  4. DILTIAZEM [Concomitant]
     Indication: HYPERTENSION
     Route: 048
  5. NEXIUM [Concomitant]
     Indication: GASTRIC PH INCREASED
     Route: 048

REACTIONS (4)
  - ACCIDENTAL EXPOSURE [None]
  - HEADACHE [None]
  - INTESTINAL PERFORATION [None]
  - NAUSEA [None]
